FAERS Safety Report 6551948-3 (Version None)
Quarter: 2010Q1

REPORT INFORMATION
  Report Type: 
  Country: None (occurrence: None)
  Receive Date: 20100120
  Receipt Date: 20100106
  Transmission Date: 20100710
  Serious: Yes (Other)
  Sender: FDA-Public Use
  Company Number: 2009-0217

PATIENT
  Age: 74 Year
  Sex: Female

DRUGS (1)
  1. DYSPORT [Suspect]
     Indication: ESSENTIAL TREMOR
     Dosage: 240 UNITS IN EACH SPLENIUS (240 UNITS, SINGLE CYCLE), INTRAMUSCULAR
     Route: 030
     Dates: start: 20090216

REACTIONS (4)
  - DRY MOUTH [None]
  - DYSPHAGIA [None]
  - FATIGUE [None]
  - OFF LABEL USE [None]
